FAERS Safety Report 8771389 (Version 1)
Quarter: 2012Q4

REPORT INFORMATION
  Report Type: 
  Country: US (occurrence: US)
  Receive Date: 20120906
  Receipt Date: 20120906
  Transmission Date: 20130627
  Serious: Yes (Disabling)
  Sender: FDA-Public Use
  Company Number: US-GLAXOSMITHKLINE-A0992039A

PATIENT
  Age: 73 Year
  Sex: Male

DRUGS (6)
  1. VOTRIENT [Suspect]
     Indication: RENAL CELL CARCINOMA STAGE IV
     Dosage: 200MG Three times per day
     Route: 048
     Dates: start: 20120719
  2. AZOR (AMLODIPINE BESILATE + OLMESARTAN MEDOXOMIL) [Concomitant]
  3. CALCIUM MAGNESIUM [Concomitant]
  4. MULTIVITAMIN [Concomitant]
  5. ASPIRIN [Concomitant]
  6. TYLENOL 3 [Concomitant]

REACTIONS (1)
  - Myalgia [Not Recovered/Not Resolved]
